FAERS Safety Report 9372727 (Version 1)
Quarter: 2013Q2

REPORT INFORMATION
  Report Type: Spontaneous
  Country: DE (occurrence: DE)
  Receive Date: 20130627
  Receipt Date: 20130627
  Transmission Date: 20140414
  Serious: Yes (Congenital Anomaly)
  Sender: FDA-Public Use
  Company Number: DE-009507513-1306DEU007815

PATIENT
  Sex: Male

DRUGS (1)
  1. PROPECIA 1MG FILMTABLETTEN [Suspect]
     Indication: ALOPECIA
     Route: 064

REACTIONS (2)
  - Canavan disease [Not Recovered/Not Resolved]
  - Exposure via father [Unknown]
